FAERS Safety Report 25768987 (Version 1)
Quarter: 2025Q3

REPORT INFORMATION
  Report Type: Spontaneous
  Country: US (occurrence: US)
  Receive Date: 20250905
  Receipt Date: 20250905
  Transmission Date: 20251020
  Serious: Yes (Death, Other)
  Sender: VIIV
  Company Number: US-VIIV HEALTHCARE ULC-US2025113832

PATIENT
  Sex: Male

DRUGS (1)
  1. RUKOBIA [Suspect]
     Active Substance: FOSTEMSAVIR TROMETHAMINE
     Indication: Product used for unknown indication

REACTIONS (2)
  - Ill-defined disorder [Fatal]
  - Gastrointestinal tube insertion [Unknown]
